FAERS Safety Report 8530621-6 (Version None)
Quarter: 2012Q3

REPORT INFORMATION
  Report Type: 
  Country: None (occurrence: None)
  Receive Date: 20120723
  Receipt Date: 20120629
  Transmission Date: 20120928
  Serious: Yes (Death, Life-Threatening, Other)
  Sender: FDA-Public Use
  Company Number: CA-SANOFI-AVENTIS-200920678GDDC

PATIENT
  Age: 79 Year
  Sex: Male

DRUGS (8)
  1. METFORMIN HYDROCHLORIDE [Concomitant]
     Dates: start: 20041001, end: 20080801
  2. LANTUS [Suspect]
     Route: 058
     Dates: start: 20041108, end: 20080824
  3. ENALAPRIL MALEATE [Concomitant]
     Indication: HYPERTENSION
     Dates: start: 20080401, end: 20080801
  4. ASPIRIN [Concomitant]
     Dates: start: 20041001, end: 20080801
  5. LENTIZOL [Concomitant]
     Indication: DEPRESSION
     Dates: start: 20080601, end: 20080801
  6. NITROGLYCERIN [Concomitant]
     Dates: start: 20041001, end: 20080801
  7. OMEGA-3 POLYUNSATURATED FATTY ACID [Suspect]
     Dates: start: 20041108, end: 20080824
  8. OPTIPEN [Suspect]

REACTIONS (1)
  - PANCREATIC CARCINOMA [None]
